FAERS Safety Report 14341542 (Version 5)
Quarter: 2019Q3

REPORT INFORMATION
  Report Type: Spontaneous
  Country: FR (occurrence: FR)
  Receive Date: 20180102
  Receipt Date: 20190918
  Transmission Date: 20191004
  Serious: Yes (Hospitalization, Other)
  Sender: FDA-Public Use
  Company Number: FR-SUN PHARMACEUTICAL INDUSTRIES LTD-2017R1-158611

PATIENT
  Age: 69 Year
  Sex: Male
  Weight: 79.5 kg

DRUGS (16)
  1. ESOMEPRAZOLE. [Suspect]
     Active Substance: ESOMEPRAZOLE MAGNESIUM
     Indication: SCLERODERMA
     Dosage: 80 MG, DAILY
     Route: 048
  2. COZAAR [Concomitant]
     Active Substance: LOSARTAN POTASSIUM
     Indication: HYPERTENSION
     Dosage: UNK ()
     Route: 048
  3. CREON [Concomitant]
     Active Substance: PANCRELIPASE AMYLASE\PANCRELIPASE LIPASE\PANCRELIPASE PROTEASE
     Indication: PANCREATIC FAILURE
     Dosage: 1 MG, DAILY
     Route: 048
  4. XARELTO [Concomitant]
     Active Substance: RIVAROXABAN
     Indication: ATRIAL FIBRILLATION
     Dosage: 1 DF, DAILY
     Route: 048
  5. VITAMIN B12 [Concomitant]
     Active Substance: CYANOCOBALAMIN
     Indication: VITAMIN B12 DEFICIENCY
     Dosage: 1 DF, 1/WEEK  (1 DF, 1 IN 1 WEEK)
     Route: 048
  6. ESOMEPRAZOLE. [Suspect]
     Active Substance: ESOMEPRAZOLE MAGNESIUM
     Indication: GASTRITIS PROPHYLAXIS
     Dosage: 40 MG, DAILY
     Route: 048
  7. ESOMEPRAZOLE. [Suspect]
     Active Substance: ESOMEPRAZOLE MAGNESIUM
     Indication: SCLERODERMA
     Dosage: 40 MG, DAILY
     Route: 048
  8. COLCHIMAX, COMPRIME PELLICULE [Suspect]
     Active Substance: COLCHICINE\OPIUM\TIEMONIUM METHYLSULFATE
     Indication: GOUT
     Dosage: 1 MG, DAILY,  2MG LE 1ER JOUR, PUIS 1MG/J
     Route: 048
     Dates: start: 20171010, end: 20171013
  9. FLECAINE [Concomitant]
     Active Substance: FLECAINIDE
     Indication: ATRIAL FIBRILLATION
     Dosage: 1 DF, QD
     Route: 048
  10. SANDOSTATINE [Concomitant]
     Active Substance: OCTREOTIDE ACETATE
     Indication: PANCREATIC FAILURE
     Dosage: UNK
     Route: 041
  11. ESIDREX [Concomitant]
     Active Substance: HYDROCHLOROTHIAZIDE
     Indication: HYPERTENSION
     Dosage: UNK
     Route: 048
  12. AMLOR 10 MG, GELULE [Concomitant]
     Active Substance: AMLODIPINE BESYLATE
     Indication: HYPERTENSION
     Dosage: 2 DF, DAILY (1 DF, 2 IN 1 DAY)
     Route: 048
  13. TRACLEER [Concomitant]
     Active Substance: BOSENTAN
     Indication: PULMONARY ARTERIAL HYPERTENSION
     Dosage: 1 DF, DAILY
     Route: 048
  14. FUMAFER [Concomitant]
     Active Substance: FERROUS FUMARATE
     Indication: IRON DEFICIENCY
     Dosage: UNK
     Route: 048
  15. PANTOPRAZOLE RANBAXY 40 MG, COMPRIME GASTRO-RESISTANT [Concomitant]
     Indication: SCLERODERMA
     Dosage: 1 DF, DAILY
     Route: 048
  16. COLCHICINE OPOCALCIUM 1 MG, COMPRIME [Suspect]
     Active Substance: COLCHICINE
     Indication: GOUT
     Dosage: 1 MG, DAILY, 2MG LE 1ER JOUR, PUIS 1MG/J
     Route: 048

REACTIONS (16)
  - Electrolyte imbalance [Recovered/Resolved]
  - Cataract [Unknown]
  - Cardiac flutter [Unknown]
  - Hypokalaemia [Recovering/Resolving]
  - Microcytic anaemia [Unknown]
  - Electrocardiogram QT prolonged [Recovered/Resolved]
  - Hypocalcaemia [Recovered/Resolved]
  - Hypomagnesaemia [Recovered/Resolved]
  - Hypokalaemia [Recovered/Resolved]
  - Paraesthesia [Recovered/Resolved]
  - Hypomagnesaemia [Recovering/Resolving]
  - Hypocalcaemia [Recovered/Resolved]
  - Hypomagnesaemia [Recovering/Resolving]
  - High frequency ablation [Unknown]
  - Diarrhoea [Recovering/Resolving]
  - Hypomagnesaemia [Recovered/Resolved]

NARRATIVE: CASE EVENT DATE: 20171013
